FAERS Safety Report 14937136 (Version 1)
Quarter: 2018Q2

REPORT INFORMATION
  Report Type: Spontaneous
  Country: ES (occurrence: ES)
  Receive Date: 20180525
  Receipt Date: 20180525
  Transmission Date: 20180711
  Serious: Yes (Life-Threatening, Hospitalization)
  Sender: FDA-Public Use
  Company Number: ES-TEVA-2018-ES-897882

PATIENT
  Age: 42 Year
  Sex: Female

DRUGS (1)
  1. AMOXICILLIN/CLAVULANIC ACID [Suspect]
     Active Substance: AMOXICILLIN\CLAVULANIC ACID
     Indication: PHARYNGITIS
     Route: 048

REACTIONS (4)
  - Hypoventilation [Recovered/Resolved]
  - Stenosis [Recovered/Resolved]
  - Impaired gastric emptying [Recovered/Resolved]
  - Anaphylactic shock [Recovered/Resolved]
